FAERS Safety Report 4527140-0 (Version None)
Quarter: 2004Q4

REPORT INFORMATION
  Report Type: 
  Country: None (occurrence: None)
  Receive Date: 20041110
  Receipt Date: 20030620
  Transmission Date: 20050328
  Serious: Yes (Other)
  Sender: FDA-Public Use
  Company Number: CHPA2003US02400

PATIENT
  Age: 53 Year
  Sex: Female
  Weight: 72.6 kg

DRUGS (3)
  1. PRIVATE LABEL STEP 1 21MG ACCT UNKNOWN (NCH)(NICOTINE) TRANS-THERAPEUT [Suspect]
     Indication: SMOKING CESSATION THERAPY
     Dosage: 1 PATCH QD, TRANSDERMAL
     Route: 062
     Dates: start: 20030610, end: 20030620
  2. PREVACID [Concomitant]
  3. ESTROGEN NOS (ESTROGEN NOS) [Concomitant]

REACTIONS (6)
  - DYSPNOEA [None]
  - INSOMNIA [None]
  - NAUSEA [None]
  - PARAESTHESIA ORAL [None]
  - THROAT IRRITATION [None]
  - THROAT TIGHTNESS [None]
